FAERS Safety Report 20547989 (Version 1)
Quarter: 2022Q1

REPORT INFORMATION
  Report Type: Spontaneous
  Country: None (occurrence: GB)
  Receive Date: 20220303
  Receipt Date: 20220303
  Transmission Date: 20220424
  Serious: Yes (Other)
  Sender: FDA-Public Use
  Company Number: GB-B.Braun Medical Inc.-2126422

PATIENT
  Age: 70 Year
  Sex: Female

DRUGS (2)
  1. METRONIDAZOLE [Suspect]
     Active Substance: METRONIDAZOLE
  2. STELARA [Suspect]
     Active Substance: USTEKINUMAB

REACTIONS (4)
  - Cellulitis [Recovering/Resolving]
  - C-reactive protein increased [Unknown]
  - Abdominal tenderness [Recovering/Resolving]
  - Adverse reaction [None]
